FAERS Safety Report 7647715-X (Version None)
Quarter: 2011Q3

REPORT INFORMATION
  Report Type: 
  Country: None (occurrence: None)
  Receive Date: 20110801
  Receipt Date: 20110801
  Transmission Date: 20111222
  Serious: Yes (Hospitalization, Disabling)
  Sender: FDA-Public Use
  Company Number: None

PATIENT
  Age: 15 Year
  Sex: Female
  Weight: 60.2 kg

DRUGS (1)
  1. NUVIGIL [Suspect]
     Indication: HYPERSOMNIA
     Dosage: 150 MG
     Route: 048

REACTIONS (6)
  - THROAT IRRITATION [None]
  - DYSURIA [None]
  - STEVENS-JOHNSON SYNDROME [None]
  - LIP SWELLING [None]
  - DYSPHONIA [None]
  - PYREXIA [None]
